FAERS Safety Report 9800664 (Version 1)
Quarter: 2014Q1

REPORT INFORMATION
  Report Type: Spontaneous
  Country: FR (occurrence: FR)
  Receive Date: 20140107
  Receipt Date: 20140107
  Transmission Date: 20141002
  Serious: Yes (Other)
  Sender: FDA-Public Use
  Company Number: FR-ROCHE-1329053

PATIENT
  Age: 39 Year
  Sex: Female

DRUGS (4)
  1. ROACTEMRA [Suspect]
     Indication: RHEUMATOID ARTHRITIS
     Route: 041
     Dates: start: 201302, end: 201308
  2. ROACTEMRA [Suspect]
     Route: 041
     Dates: start: 201311
  3. PYOSTACINE [Concomitant]
     Dosage: FOR 10 DAYS
     Route: 065
  4. SOLUPRED (FRANCE) [Concomitant]
     Dosage: FOR 10 DAYS
     Route: 065

REACTIONS (1)
  - Face oedema [Recovered/Resolved]
